FAERS Safety Report 23623898 (Version 1)
Quarter: 2024Q1

REPORT INFORMATION
  Report Type: Report from Study
  Country: US (occurrence: US)
  Receive Date: 20240312
  Receipt Date: 20240312
  Transmission Date: 20240409
  Serious: Yes (Hospitalization)
  Sender: FDA-Public Use
  Company Number: US-JAZZ PHARMACEUTICALS-2023-US-025589

PATIENT
  Sex: Male

DRUGS (10)
  1. EPIDIOLEX [Suspect]
     Active Substance: CANNABIDIOL
     Indication: Lennox-Gastaut syndrome
     Dosage: 1.9 MILLILITER, BID
     Route: 048
     Dates: start: 202312
  2. EPIDIOLEX [Suspect]
     Active Substance: CANNABIDIOL
     Indication: Encephalitis
     Dosage: 1.9 MILLILITER, BID
     Route: 048
     Dates: start: 202312
  3. EPIDIOLEX [Suspect]
     Active Substance: CANNABIDIOL
     Indication: Encephalomyelitis
     Dosage: 1.9 MILLILITER, BID
     Route: 048
     Dates: start: 202312
  4. GAMUNEX [Concomitant]
     Active Substance: HUMAN IMMUNOGLOBULIN G
     Indication: Product used for unknown indication
     Dosage: INFUSE 35 GM (350 ML) INTRAVENOUSLY DAILY FOR 2 DAYS EVERY 4 WEEKS
     Route: 042
     Dates: start: 202310
  5. HEPARIN SODIUM [Concomitant]
     Active Substance: HEPARIN SODIUM
     Indication: Product used for unknown indication
     Dosage: HEPARIN L/L FLUSH SYR (5ML)
  6. EPINEPHRINE [Concomitant]
     Active Substance: EPINEPHRINE
     Indication: Product used for unknown indication
     Dosage: AUTO-INJECTOR
  7. SODIUM CHLORIDE [Concomitant]
     Active Substance: SODIUM CHLORIDE
     Indication: Product used for unknown indication
     Dosage: NORMAL SALINE FLUSH (5 ML)
  8. GAMUNEX-C [Concomitant]
     Active Substance: HUMAN IMMUNOGLOBULIN G
     Indication: Product used for unknown indication
     Dosage: 10% SDV (10GM/100ML)
  9. GAMUNEX-C [Concomitant]
     Active Substance: HUMAN IMMUNOGLOBULIN G
     Dosage: 10% SDV (5GM/50ML)
  10. GAMUNEX-C [Concomitant]
     Active Substance: HUMAN IMMUNOGLOBULIN G
     Dosage: 10% SDV (20GM/200ML)

REACTIONS (7)
  - Aggression [Unknown]
  - Agitation [Unknown]
  - Mania [Unknown]
  - Insomnia [Unknown]
  - Self-injurious ideation [Unknown]
  - Infection [Unknown]
  - Illness [Unknown]
